FAERS Safety Report 4417242-1 (Version None)
Quarter: 2004Q3

REPORT INFORMATION
  Report Type: 
  Country: None (occurrence: None)
  Receive Date: 20040802
  Receipt Date: 20040719
  Transmission Date: 20050211
  Serious: Yes (Death, Life-Threatening, Hospitalization, Disabling, Other)
  Sender: FDA-Public Use
  Company Number: 001-0981-M0001130

PATIENT
  Age: 46 Year
  Sex: Male
  Weight: 79.1 kg

DRUGS (22)
  1. ATORVASTATIN CALCIUM [Suspect]
     Indication: PROPHYLAXIS
     Dosage: 10 MG (DAILY), ORAL
     Route: 048
     Dates: start: 19971121, end: 20000219
  2. METFORMIN HCL [Concomitant]
  3. LOPERAMIDE HYDROCHLORIDE [Concomitant]
  4. GLIPIZIDE [Concomitant]
  5. ASCORBIC ACID [Concomitant]
  6. MULTIVITAMIN [Concomitant]
  7. METHYLPREDNISOLONE [Concomitant]
  8. EPOETIN ALFA (EPOETIN ALFA) [Concomitant]
  9. ALL OTHER THERAPEUTIC PRODUCTS (ALL OTHER THERAPEUTIC PRODUCTS) [Concomitant]
  10. FERROUS SULFATE TAB [Concomitant]
  11. CLONIDINE [Concomitant]
  12. BACTRIM [Concomitant]
  13. SIROLIMUS (SIROLIMUS) [Concomitant]
  14. DAPSONE [Concomitant]
  15. SODIUM BICARBONATE IN PLASTIC CONTAINER [Concomitant]
  16. LANSOPRAZOLE [Concomitant]
  17. INSULIN [Concomitant]
  18. DILTIAZEM [Concomitant]
  19. MAALOX (MAGNESIUM HYDROXIDE, ALUMINIUM HYDROXIDE GEL) [Concomitant]
  20. SUCRALFATE [Concomitant]
  21. ISOPHANE INSULIN [Concomitant]
  22. TACROLIMUS (TACROLIMUS) [Concomitant]

REACTIONS (41)
  - ACTIVATED PARTIAL THROMBOPLASTIN TIME PROLONGED [None]
  - AMMONIA INCREASED [None]
  - ANAEMIA [None]
  - BLOOD BICARBONATE DECREASED [None]
  - BLOOD CHLORIDE DECREASED [None]
  - BLOOD CREATINE PHOSPHOKINASE MB INCREASED [None]
  - BLOOD GLUCOSE INCREASED [None]
  - BLOOD MAGNESIUM INCREASED [None]
  - BLOOD POTASSIUM DECREASED [None]
  - BLOOD SODIUM DECREASED [None]
  - COAGULOPATHY [None]
  - CULTURE URINE POSITIVE [None]
  - DEHYDRATION [None]
  - DIALYSIS [None]
  - DISCOMFORT [None]
  - DISORIENTATION [None]
  - GASTROINTESTINAL HAEMORRHAGE [None]
  - HEPATIC ENCEPHALOPATHY [None]
  - HEPATITIS A [None]
  - HEPATITIS FULMINANT [None]
  - HEPATORENAL SYNDROME [None]
  - INTERNATIONAL NORMALISED RATIO DECREASED [None]
  - INTERNATIONAL NORMALISED RATIO INCREASED [None]
  - LIPASE INCREASED [None]
  - LIVER TRANSPLANT [None]
  - LIVER TRANSPLANT REJECTION [None]
  - LUNG DISORDER [None]
  - MALNUTRITION [None]
  - PAIN [None]
  - PANCREATITIS [None]
  - POST PROCEDURAL COMPLICATION [None]
  - PROTHROMBIN TIME PROLONGED [None]
  - PYELONEPHRITIS [None]
  - RENAL CORTICAL NECROSIS [None]
  - RENAL FAILURE ACUTE [None]
  - RENAL FAILURE CHRONIC [None]
  - RENAL TRANSPLANT [None]
  - RENAL TUBULAR NECROSIS [None]
  - STAPHYLOCOCCAL INFECTION [None]
  - TREATMENT NONCOMPLIANCE [None]
  - WHITE BLOOD CELL COUNT INCREASED [None]
